FAERS Safety Report 13631978 (Version 1)
Quarter: 2017Q2

REPORT INFORMATION
  Report Type: Spontaneous
  Country: US (occurrence: US)
  Receive Date: 20170531
  Receipt Date: 20170531
  Transmission Date: 20170830
  Serious: No
  Sender: FDA-Public Use
  Company Number: US-ASTELLAS-1429471

PATIENT
  Sex: Female
  Weight: 47 kg

DRUGS (8)
  1. ASPIRIN. [Concomitant]
     Active Substance: ASPIRIN
     Route: 048
  2. KEFLEX [Concomitant]
     Active Substance: CEPHALEXIN
     Route: 048
  3. TARCEVA [Suspect]
     Active Substance: ERLOTINIB HYDROCHLORIDE
     Indication: LUNG CANCER METASTATIC
     Route: 048
     Dates: start: 20110927
  4. NEXIUM [Concomitant]
     Active Substance: ESOMEPRAZOLE MAGNESIUM
     Route: 048
  5. TARCEVA [Suspect]
     Active Substance: ERLOTINIB HYDROCHLORIDE
     Route: 048
  6. REMERON [Concomitant]
     Active Substance: MIRTAZAPINE
     Route: 048
  7. VITAMIN B12 [Concomitant]
     Active Substance: CYANOCOBALAMIN
     Route: 048
  8. ERYTHROMYCIN. [Concomitant]
     Active Substance: ERYTHROMYCIN
     Route: 047

REACTIONS (12)
  - Tachycardia [Unknown]
  - Pleural effusion [Unknown]
  - Ocular hyperaemia [Unknown]
  - Fatigue [Unknown]
  - Breath sounds abnormal [Unknown]
  - Rash [Unknown]
  - Nail pitting [Unknown]
  - Pneumonia [Unknown]
  - Dementia [Unknown]
  - Memory impairment [Unknown]
  - Mental status changes [Unknown]
  - Cachexia [Unknown]
